FAERS Safety Report 5066615-5 (Version None)
Quarter: 2006Q3

REPORT INFORMATION
  Report Type: 
  Country: None (occurrence: None)
  Receive Date: 20060712
  Receipt Date: 20060421
  Transmission Date: 20061208
  Serious: No
  Sender: FDA-Public Use
  Company Number: A03200602604

PATIENT
  Age: 84 Year
  Sex: Male

DRUGS (3)
  1. UROXATRAL [Suspect]
     Indication: PROSTATE EXAMINATION ABNORMAL
     Dosage: 10 MG HS - ORAL
     Route: 048
     Dates: start: 20060411
  2. DUTASTERIDE - CAPSULE [Suspect]
  3. FEW UNKNOWN MEDICATIONS [Concomitant]

REACTIONS (1)
  - VOMITING [None]
